FAERS Safety Report 24218290 (Version 1)
Quarter: 2024Q3

REPORT INFORMATION
  Report Type: Spontaneous
  Country: ZA (occurrence: None)
  Receive Date: 20240816
  Receipt Date: 20240816
  Transmission Date: 20241017
  Serious: Yes (Hospitalization)
  Sender: ASTRAZENECA
  Company Number: 2024A182299

PATIENT
  Age: 13514 Day
  Sex: Female

DRUGS (8)
  1. DAPAGLIFLOZIN PROPANEDIOL [Suspect]
     Active Substance: DAPAGLIFLOZIN PROPANEDIOL
     Indication: Type 2 diabetes mellitus
     Route: 048
  2. GLUCOPHAGE [Concomitant]
     Active Substance: METFORMIN HYDROCHLORIDE
     Indication: Type 2 diabetes mellitus
     Route: 048
  3. SPIRACTIN [Concomitant]
     Indication: Hypertension
     Route: 048
  4. SPIRACTIN [Concomitant]
     Indication: Oedema
     Route: 048
  5. SPIRACTIN [Concomitant]
     Indication: Cardiac failure
     Route: 048
  6. SPIRACTIN [Concomitant]
     Indication: Hepatic cirrhosis
     Route: 048
  7. SPIRACTIN [Concomitant]
     Indication: Renal impairment
     Route: 048
  8. ACETAMINOPHEN\CODEINE\IBUPROFEN [Concomitant]
     Active Substance: ACETAMINOPHEN\CODEINE\IBUPROFEN
     Route: 048

REACTIONS (2)
  - Bronchitis [Unknown]
  - Pneumonia [Unknown]
